FAERS Safety Report 6725956-3 (Version None)
Quarter: 2010Q2

REPORT INFORMATION
  Report Type: 
  Country: None (occurrence: None)
  Receive Date: 20100512
  Receipt Date: 20100426
  Transmission Date: 20101027
  Serious: Yes (Hospitalization)
  Sender: FDA-Public Use
  Company Number: CTI_01184_2010

PATIENT
  Age: 60 Year
  Sex: Female

DRUGS (4)
  1. SPECTRACEF (MEIACT MS TABLETS (CEFDITOREN PIVOXIL)) (NOT SPECIFIED) [Suspect]
     Indication: UPPER RESPIRATORY TRACT INFLAMMATION
     Dosage: (300 MG, DAILY ORAL)
     Route: 048
     Dates: start: 20100318, end: 20100319
  2. PL GRANULES (NON-PYRAZOLONE COLD DRUG) [Suspect]
     Indication: DRUG USE FOR UNKNOWN INDICATION
     Dosage: (3 G, DAILY ORAL)
     Route: 048
     Dates: start: 20100318, end: 20100319
  3. FUDOSTEINE [Concomitant]
  4. EPINASTINE HYDROCHLORIDE [Concomitant]

REACTIONS (2)
  - ANAEMIA [None]
  - HAEMOLYTIC URAEMIC SYNDROME [None]
